FAERS Safety Report 4348356-2 (Version None)
Quarter: 2004Q2

REPORT INFORMATION
  Report Type: 
  Country: None (occurrence: None)
  Receive Date: 20040422
  Receipt Date: 20040409
  Transmission Date: 20050107
  Serious: Yes (Death, Hospitalization)
  Sender: FDA-Public Use
  Company Number: EWC031237506

PATIENT
  Age: 56 Year
  Sex: Male
  Weight: 64 kg

DRUGS (22)
  1. GEMCITABINE HYDROCHLORIDE-IV (GEMCITABINE) [Suspect]
     Indication: NON-SMALL CELL LUNG CANCER
     Dosage: 4800 MG/M2/OTHER
     Route: 050
     Dates: start: 20030430, end: 20031008
  2. CISPLATIN [Concomitant]
  3. LORATADINE [Concomitant]
  4. DOMPERIDONE [Concomitant]
  5. FENTANYL [Concomitant]
  6. PROCHLORPERAZINE [Concomitant]
  7. CLONAZEPAM [Concomitant]
  8. AMS [Concomitant]
  9. AUGMENTIN [Concomitant]
  10. TAXOTERE [Concomitant]
  11. TINTEN (PARACETAMOL) [Concomitant]
  12. PETHIDINE [Concomitant]
  13. DOBUTAMINE [Concomitant]
  14. HALDOL [Concomitant]
  15. AMIKIN [Concomitant]
  16. PENICILLIN [Concomitant]
  17. DULCOLAX [Concomitant]
  18. COMBIZYM [Concomitant]
  19. HYTRIN [Concomitant]
  20. ZYRTEC [Concomitant]
  21. RIFINAH [Concomitant]
  22. ETHAMBUTOL [Concomitant]

REACTIONS (14)
  - ASTHENIA [None]
  - BLOOD PRESSURE DECREASED [None]
  - CONSTIPATION [None]
  - COUGH [None]
  - DEPRESSED LEVEL OF CONSCIOUSNESS [None]
  - FEELING COLD [None]
  - METASTASES TO SPINE [None]
  - MYALGIA [None]
  - PNEUMONIA ASPIRATION [None]
  - SEPSIS [None]
  - SPINAL CORD COMPRESSION [None]
  - SPUTUM ABNORMAL [None]
  - SPUTUM CULTURE POSITIVE [None]
  - URINE OUTPUT DECREASED [None]
